FAERS Safety Report 9744851 (Version 4)
Quarter: 2014Q1

REPORT INFORMATION
  Report Type: Report from Study
  Country: JP (occurrence: JP)
  Receive Date: 20131211
  Receipt Date: 20140318
  Transmission Date: 20141002
  Serious: Yes (Other)
  Sender: FDA-Public Use
  Company Number: JP-ROCHE-1317217

PATIENT
  Age: 59 Year
  Sex: Male

DRUGS (13)
  1. RITUXIMAB [Suspect]
     Indication: DIFFUSE LARGE B-CELL LYMPHOMA
     Route: 042
     Dates: start: 20121015, end: 20121126
  2. DEXAMETHASONE [Suspect]
     Indication: DIFFUSE LARGE B-CELL LYMPHOMA
     Route: 042
     Dates: start: 20121016, end: 20121130
  3. CISPLATIN [Suspect]
     Indication: DIFFUSE LARGE B-CELL LYMPHOMA
     Route: 042
     Dates: start: 20121016, end: 20121128
  4. CYTARABINE [Suspect]
     Indication: DIFFUSE LARGE B-CELL LYMPHOMA
     Dosage: 4G/M2
     Route: 042
     Dates: start: 20121017, end: 20121129
  5. CYCLOPHOSPHAMIDE [Suspect]
     Indication: DIFFUSE LARGE B-CELL LYMPHOMA
     Route: 042
     Dates: start: 20130107, end: 20130108
  6. MESNA [Suspect]
     Indication: DIFFUSE LARGE B-CELL LYMPHOMA
     Route: 042
     Dates: start: 20130107, end: 20130108
  7. ETOPOSIDE [Suspect]
     Indication: DIFFUSE LARGE B-CELL LYMPHOMA
     Route: 042
     Dates: start: 20130107, end: 20130109
  8. MELPHALAN [Suspect]
     Indication: PRODUCT USED FOR UNKNOWN INDICATION
     Route: 042
     Dates: start: 20130110, end: 20130110
  9. FLUCONAZOLE [Concomitant]
     Route: 065
     Dates: start: 20130109
  10. ACYCLOVIR [Concomitant]
     Route: 065
     Dates: start: 20130109
  11. SULFAMETHOXAZOLE/TRIMETHOPRIM [Concomitant]
     Route: 065
     Dates: start: 20130201
  12. ESOMEPRAZOLE [Concomitant]
     Route: 065
     Dates: start: 20121016
  13. POVIDONE-IODINE [Concomitant]
     Route: 065
     Dates: start: 20121016

REACTIONS (1)
  - Myelodysplastic syndrome [Not Recovered/Not Resolved]
